FAERS Safety Report 14353839 (Version 4)
Quarter: 2018Q2

REPORT INFORMATION
  Report Type: Spontaneous
  Country: JP (occurrence: JP)
  Receive Date: 20180105
  Receipt Date: 20180516
  Transmission Date: 20180711
  Serious: Yes (Hospitalization, Other)
  Sender: FDA-Public Use
  Company Number: JP-EMD SERONO-9004675

PATIENT
  Age: 35 Year
  Sex: Female

DRUGS (2)
  1. GONAL-F RFF [Suspect]
     Active Substance: FOLLITROPIN
     Indication: PRODUCT USED FOR UNKNOWN INDICATION
     Route: 058
     Dates: start: 201608, end: 201609
  2. GONAL-F [Suspect]
     Active Substance: FOLLITROPIN
     Indication: INFERTILITY
     Dosage: UNIT DOSE: 300 (UNSPECIFIED UNIT)
     Route: 058
     Dates: start: 20160830, end: 20160830

REACTIONS (5)
  - Pericardial effusion [Unknown]
  - Ovarian hyperstimulation syndrome [Recovering/Resolving]
  - Tachycardia [Unknown]
  - Premature delivery [Recovered/Resolved]
  - Platelet count increased [Unknown]

NARRATIVE: CASE EVENT DATE: 20160926
